FAERS Safety Report 18030464 (Version 2)
Quarter: 2020Q3

REPORT INFORMATION
  Report Type: Report from Study
  Country: US (occurrence: US)
  Receive Date: 20200715
  Receipt Date: 20200724
  Transmission Date: 20201103
  Serious: Yes (Death, Hospitalization)
  Sender: FDA-Public Use
  Company Number: US-ACTELION-A-NJ2018-179373

PATIENT
  Age: 66 Year
  Sex: Female
  Weight: 64.85 kg

DRUGS (4)
  1. FLOLAN [Concomitant]
     Active Substance: EPOPROSTENOL SODIUM
     Dosage: 52 NG/KG, PER MIN
     Route: 042
     Dates: end: 20200719
  2. XARELTO [Concomitant]
     Active Substance: RIVAROXABAN
  3. SILDENAFIL CITRATE. [Concomitant]
     Active Substance: SILDENAFIL CITRATE
     Dosage: 80 MG, TID
     Route: 048
     Dates: end: 20200719
  4. OPSUMIT [Suspect]
     Active Substance: MACITENTAN
     Indication: PULMONARY ARTERIAL HYPERTENSION
     Dosage: 10 MG QD
     Route: 048
     Dates: end: 20200719

REACTIONS (15)
  - Renal disorder [Unknown]
  - Limb injury [Unknown]
  - Bone pain [Unknown]
  - Catheter site irritation [Unknown]
  - Catheter site pruritus [Unknown]
  - Skin discolouration [Unknown]
  - Respiratory failure [Fatal]
  - Peripheral swelling [Unknown]
  - Back pain [Unknown]
  - Syncope [Unknown]
  - Thrombosis [Unknown]
  - Fatigue [Unknown]
  - Gait disturbance [Unknown]
  - Haematoma [Unknown]
  - Pericardial drainage [Unknown]

NARRATIVE: CASE EVENT DATE: 20181022
